FAERS Safety Report 20401432 (Version 1)
Quarter: 2022Q1

REPORT INFORMATION
  Report Type: Other
  Country: CA (occurrence: CA)
  Receive Date: 20220131
  Receipt Date: 20220131
  Transmission Date: 20220423
  Serious: Yes (Other)
  Sender: FDA-Public Use
  Company Number: None

PATIENT
  Age: 72 Year
  Sex: Female
  Weight: 60 kg

DRUGS (10)
  1. FUROSEMIDE [Suspect]
     Active Substance: FUROSEMIDE
     Indication: Product used for unknown indication
     Route: 065
  2. OMEPRAZOLE [Suspect]
     Active Substance: OMEPRAZOLE
     Indication: Product used for unknown indication
     Route: 065
  3. SPIRONOLACTONE [Suspect]
     Active Substance: SPIRONOLACTONE
     Indication: Product used for unknown indication
     Route: 065
  4. AMBRISENTAN [Suspect]
     Active Substance: AMBRISENTAN
     Indication: Pulmonary arterial hypertension
     Dosage: 1 EVERY 24 HOURS
     Route: 065
  5. ARGININE [Suspect]
     Active Substance: ARGININE
     Indication: Product used for unknown indication
     Route: 065
  6. COENZYME Q10 [Suspect]
     Active Substance: DIETARY SUPPLEMENT\UBIDECARENONE
     Indication: Product used for unknown indication
     Route: 065
  7. FOLIC ACID [Suspect]
     Active Substance: FOLIC ACID
     Indication: Product used for unknown indication
     Route: 065
  8. MAGNESIUM ASPARTATE HYDROCHLORIDE [Suspect]
     Active Substance: MAGNESIUM ASPARTATE HYDROCHLORIDE
     Indication: Product used for unknown indication
     Route: 065
  9. SILDENAFIL CITRATE [Suspect]
     Active Substance: SILDENAFIL CITRATE
     Indication: Product used for unknown indication
     Route: 065
  10. TYLENOL [Suspect]
     Active Substance: ACETAMINOPHEN
     Indication: Product used for unknown indication
     Route: 065

REACTIONS (1)
  - Right ventricular failure [Unknown]
